FAERS Safety Report 19050852 (Version 3)
Quarter: 2021Q3

REPORT INFORMATION
  Report Type: Spontaneous
  Country: DE (occurrence: DE)
  Receive Date: 20210324
  Receipt Date: 20210702
  Transmission Date: 20211014
  Serious: Yes (Death)
  Sender: FDA-Public Use
  Company Number: DE-STEMLINE THERAPEUTICS, INC.-2021ST000010

PATIENT
  Age: 73 Year
  Sex: Male
  Weight: 105 kg

DRUGS (7)
  1. MELPERON [Concomitant]
     Active Substance: MELPERONE
     Indication: LEUKAEMIA RECURRENT
     Dates: start: 20210310, end: 20210311
  2. METHOTREXAT [Concomitant]
     Active Substance: METHOTREXATE
     Indication: LEUKAEMIA RECURRENT
     Dates: end: 20210309
  3. DEXAMETHASON [Concomitant]
     Active Substance: DEXAMETHASONE
     Indication: LEUKAEMIA RECURRENT
     Dates: end: 20210308
  4. VIDAZA [Suspect]
     Active Substance: AZACITIDINE
     Indication: LEUKAEMIA RECURRENT
     Dosage: DAY 1?7
     Dates: start: 20200817, end: 20210223
  5. ELZONRIS [Suspect]
     Active Substance: TAGRAXOFUSP-ERZS
     Indication: BLASTIC PLASMACYTOID DENDRITIC CELL NEOPLASIA
     Dosage: DAY 1 TO DAY 5 OF A 21?DAY CYCLE; 5 CYCLES
     Route: 042
     Dates: start: 20200904, end: 20210219
  6. CYTARABIN [Concomitant]
     Active Substance: CYTARABINE
     Indication: LEUKAEMIA RECURRENT
     Dates: end: 20210309
  7. VENETOCLAX. [Suspect]
     Active Substance: VENETOCLAX
     Indication: LEUKAEMIA RECURRENT

REACTIONS (8)
  - Asthenia [Not Recovered/Not Resolved]
  - Disorientation [Unknown]
  - Tachycardia [Recovered/Resolved]
  - Disease progression [Fatal]
  - Fall [Not Recovered/Not Resolved]
  - Leukaemia recurrent [Fatal]
  - Thrombocytopenia [Not Recovered/Not Resolved]
  - Hypotension [Recovered/Resolved]

NARRATIVE: CASE EVENT DATE: 20210307
